FAERS Safety Report 18646568 (Version 2)
Quarter: 2021Q1

REPORT INFORMATION
  Report Type: Spontaneous
  Country: US (occurrence: US)
  Receive Date: 20201222
  Receipt Date: 20210226
  Transmission Date: 20210419
  Serious: Yes (Death, Hospitalization, Other)
  Sender: FDA-Public Use
  Company Number: US-009507513-2012USA008804

PATIENT
  Sex: Male
  Weight: 65.76 kg

DRUGS (8)
  1. JANUVIA [Suspect]
     Active Substance: SITAGLIPTIN PHOSPHATE
     Indication: TYPE 1 DIABETES MELLITUS
     Dosage: 50 MILLIGRAM, QD
     Route: 048
     Dates: start: 20180312, end: 20190428
  2. CLOPIDOGREL [Concomitant]
     Active Substance: CLOPIDOGREL BISULFATE
     Indication: ANTICOAGULANT THERAPY
     Dosage: UNK
     Dates: start: 20160309, end: 20190313
  3. RANEXA [Concomitant]
     Active Substance: RANOLAZINE
     Indication: TONSILLITIS
     Dosage: UNK
     Dates: start: 20180308, end: 20190512
  4. NITROGLYCERIN. [Concomitant]
     Active Substance: NITROGLYCERIN
     Indication: TONSILLITIS
     Dosage: UNK
     Dates: start: 20161024, end: 20190312
  5. AMLODIPINE BESYLATE. [Concomitant]
     Active Substance: AMLODIPINE BESYLATE
     Indication: HYPERTENSION
     Dosage: UNK
     Dates: start: 20161102, end: 20190309
  6. VALSARTAN. [Concomitant]
     Active Substance: VALSARTAN
     Indication: HYPERTENSION
     Dosage: UNK
     Dates: start: 20170803, end: 20190301
  7. CARVEDILOL. [Concomitant]
     Active Substance: CARVEDILOL
     Indication: HYPERTENSION
     Dosage: UNK
     Dates: start: 20160208, end: 20190619
  8. HUMALOG [Concomitant]
     Active Substance: INSULIN LISPRO
     Dosage: 100 UNIT/ML
     Dates: start: 20180201, end: 20190202

REACTIONS (24)
  - Renal failure [Unknown]
  - Vomiting [Unknown]
  - Drug hypersensitivity [Unknown]
  - Intervertebral disc degeneration [Unknown]
  - Macular oedema [Unknown]
  - Peripheral vascular disorder [Unknown]
  - Obesity [Unknown]
  - Arteriosclerosis [Unknown]
  - Anuria [Unknown]
  - Blindness [Unknown]
  - Hyperlipidaemia [Unknown]
  - Hyperglycaemia [Unknown]
  - Vision blurred [Unknown]
  - Nausea [Unknown]
  - Vascular calcification [Unknown]
  - Helicobacter infection [Unknown]
  - Pancreatic carcinoma metastatic [Fatal]
  - Metastases to liver [Fatal]
  - Pancreatitis [Unknown]
  - Lymphadenopathy [Unknown]
  - Metastases to spleen [Fatal]
  - Chronic obstructive pulmonary disease [Unknown]
  - Retinopathy [Unknown]
  - Product use in unapproved indication [Unknown]

NARRATIVE: CASE EVENT DATE: 20180312
